FAERS Safety Report 10336642 (Version 2)
Quarter: 2014Q3

REPORT INFORMATION
  Report Type: Spontaneous
  Country: US (occurrence: US)
  Receive Date: 20140723
  Receipt Date: 20140723
  Transmission Date: 20150326
  Serious: No
  Sender: FDA-Public Use
  Company Number: US-UNITED THERAPEUTICS-UTC-047211

PATIENT
  Sex: Female
  Weight: 94.98 kg

DRUGS (3)
  1. REMODULIN [Suspect]
     Active Substance: TREPROSTINIL
     Dosage: 0.005 ?G/KG/MIN, CONTINUING
     Route: 058
     Dates: start: 20140331
  2. REVATIO [Concomitant]
     Active Substance: SILDENAFIL CITRATE
     Indication: PRODUCT USED FOR UNKNOWN INDICATION
  3. WARFARIN [Concomitant]
     Active Substance: WARFARIN
     Indication: PRODUCT USED FOR UNKNOWN INDICATION

REACTIONS (9)
  - Infusion site haemorrhage [Unknown]
  - Ecchymosis [Unknown]
  - Infusion site pain [Unknown]
  - Infusion site erythema [Unknown]
  - Infusion site swelling [Unknown]
  - Headache [Unknown]
  - Infusion site pruritus [Unknown]
  - Decreased appetite [Unknown]
  - Mobility decreased [Unknown]
